FAERS Safety Report 7655243-0 (Version None)
Quarter: 2011Q3

REPORT INFORMATION
  Report Type: 
  Country: None (occurrence: None)
  Receive Date: 20110729
  Receipt Date: 20110719
  Transmission Date: 20111222
  Serious: Yes (Other)
  Sender: FDA-Public Use
  Company Number: 2011SP027075

PATIENT
  Age: 51 Year
  Sex: Male

DRUGS (2)
  1. PEGATRON (PEGYLATED INTERFERON ALFA-2B W/RIBAVIRIN) [Suspect]
     Indication: HEPATITIS C
     Dosage: QW, SC
     Route: 058
     Dates: start: 20100813, end: 20110708
  2. PEGATRON (PEGYLATED INTERFERON ALFA-2B W/RIBAVIRIN) [Suspect]
     Indication: HEPATIC CIRRHOSIS
     Dosage: QW, SC
     Route: 058
     Dates: start: 20100813, end: 20110708

REACTIONS (4)
  - NECROSIS [None]
  - INJECTION SITE INFECTION [None]
  - INJECTION SITE ERYTHEMA [None]
  - INJECTION SITE PAIN [None]
